FAERS Safety Report 15662342 (Version 2)
Quarter: 2018Q4

REPORT INFORMATION
  Report Type: Report from Study
  Country: None (occurrence: FR)
  Receive Date: 20181127
  Receipt Date: 20181201
  Transmission Date: 20190205
  Serious: Yes (Disabling)
  Sender: FDA-Public Use
  Company Number: FR-ABBVIE-18S-056-2478521-00

PATIENT
  Age: 56 Year
  Sex: Male

DRUGS (2)
  1. DUODOPA [Suspect]
     Active Substance: CARBIDOPA\LEVODOPA
     Indication: PARKINSON^S DISEASE
     Dosage: UNSPECIFIED DOSE
     Route: 050
     Dates: start: 20180601, end: 20180829
  2. DUODOPA [Suspect]
     Active Substance: CARBIDOPA\LEVODOPA
     Dosage: CD 4.6 ML/H FROM 07:00 AM TO 03:00 PM, 4.8 ML/H FROM 03:00 PM TO 11:00 PM. EXTRA DOSE:2 ML
     Route: 050
     Dates: start: 20180829

REACTIONS (2)
  - Myalgia [Not Recovered/Not Resolved]
  - Freezing phenomenon [Not Recovered/Not Resolved]

NARRATIVE: CASE EVENT DATE: 201808
